FAERS Safety Report 20072932 (Version 4)
Quarter: 2021Q4

REPORT INFORMATION
  Report Type: Report from Study
  Country: US (occurrence: US)
  Receive Date: 20211116
  Receipt Date: 20211215
  Transmission Date: 20220303
  Serious: Yes (Hospitalization, Other)
  Sender: FDA-Public Use
  Company Number: US-ABBVIE-21K-163-4156427-00

PATIENT
  Sex: Female

DRUGS (6)
  1. HUMIRA [Suspect]
     Active Substance: ADALIMUMAB
     Indication: Crohn^s disease
     Route: 058
     Dates: end: 2018
  2. HUMIRA [Suspect]
     Active Substance: ADALIMUMAB
     Route: 058
     Dates: start: 201906, end: 20211124
  3. STELARA [Suspect]
     Active Substance: USTEKINUMAB
     Indication: Ileal stenosis
     Route: 065
     Dates: start: 2018, end: 201906
  4. STELARA [Suspect]
     Active Substance: USTEKINUMAB
     Indication: Crohn^s disease
  5. MODERNA COVID-19 VACCINE [Concomitant]
     Active Substance: ELASOMERAN
     Indication: COVID-19 immunisation
     Route: 030
     Dates: start: 20210205, end: 20210205
  6. MODERNA COVID-19 VACCINE [Concomitant]
     Active Substance: ELASOMERAN
     Route: 030
     Dates: start: 20210505, end: 20210505

REACTIONS (22)
  - Ileal stenosis [Recovered/Resolved]
  - Small intestinal obstruction [Recovered/Resolved]
  - Crohn^s disease [Recovered/Resolved]
  - Streptococcal infection [Recovered/Resolved]
  - Dyskinesia [Unknown]
  - Heart rate decreased [Recovered/Resolved]
  - Pulse abnormal [Recovered/Resolved]
  - Drug ineffective [Unknown]
  - Device issue [Unknown]
  - Incorrect dose administered [Unknown]
  - Pain in extremity [Unknown]
  - Aphthous ulcer [Recovered/Resolved]
  - Ulcer [Recovered/Resolved]
  - Bowel movement irregularity [Recovered/Resolved]
  - Fatigue [Recovered/Resolved]
  - Decreased appetite [Recovered/Resolved]
  - COVID-19 [Unknown]
  - Odynophagia [Recovered/Resolved]
  - Dysphagia [Recovered/Resolved]
  - Adverse food reaction [Unknown]
  - Abdominal pain upper [Recovered/Resolved]
  - Sinusitis [Unknown]

NARRATIVE: CASE EVENT DATE: 20150101
